FAERS Safety Report 4733539-X (Version None)
Quarter: 2005Q3

REPORT INFORMATION
  Report Type: 
  Country: None (occurrence: None)
  Receive Date: 20050729
  Receipt Date: 20050719
  Transmission Date: 20060218
  Serious: Yes (Hospitalization)
  Sender: FDA-Public Use
  Company Number: 230031M05GBR

PATIENT
  Sex: Male

DRUGS (1)
  1. REBIF [Suspect]

REACTIONS (5)
  - AGGRESSION [None]
  - CONFUSIONAL STATE [None]
  - HOSTILITY [None]
  - MEDICATION ERROR [None]
  - MENTAL DISORDER [None]
